FAERS Safety Report 4388416-3 (Version None)
Quarter: 2004Q3

REPORT INFORMATION
  Report Type: 
  Country: None (occurrence: None)
  Receive Date: 20040701
  Receipt Date: 20040621
  Transmission Date: 20050211
  Serious: Yes (Other)
  Sender: FDA-Public Use
  Company Number: US-ROCHE-371719

PATIENT

DRUGS (2)
  1. PEGASYS [Suspect]
     Indication: DRUG USE FOR UNKNOWN INDICATION
     Route: 058
     Dates: start: 20030415, end: 20030615
  2. PEGASYS [Suspect]
     Route: 058
     Dates: start: 20030615

REACTIONS (3)
  - ASTHMA [None]
  - COUGH [None]
  - NEUTROPENIA [None]
